FAERS Safety Report 20869340 (Version 3)
Quarter: 2022Q3

REPORT INFORMATION
  Report Type: Spontaneous
  Country: PT (occurrence: PT)
  Receive Date: 20220524
  Receipt Date: 20220809
  Transmission Date: 20221026
  Serious: Yes (Disabling)
  Sender: FDA-Public Use
  Company Number: None

PATIENT
  Age: 59 Year
  Sex: Female
  Weight: 85 kg

DRUGS (3)
  1. TUKYSA [Suspect]
     Active Substance: TUCATINIB
     Indication: Breast cancer metastatic
     Dosage: 300MG 12/12
     Route: 048
     Dates: start: 20210917, end: 20220418
  2. CAPECITABINE [Concomitant]
     Active Substance: CAPECITABINE
     Dosage: 1650 MG Q12H (1000 MG/M2 BID) ON DAYS 1 TO 14 IN CYCLES OF Q21D
     Route: 048
  3. TRASTUZUMAB [Concomitant]
     Active Substance: TRASTUZUMAB
     Dosage: TRASTUZUMAB 600MG SC 21/21 DIAS
     Route: 058

REACTIONS (1)
  - Pleural effusion [Unknown]

NARRATIVE: CASE EVENT DATE: 20220414
